FAERS Safety Report 7717529 (Version 5)
Quarter: 2012Q4

REPORT INFORMATION
  Report Type: Report from Study
  Country: US (occurrence: US)
  Receive Date: 20101217
  Receipt Date: 20120918
  Transmission Date: 20130627
  Serious: Yes (Other)
  Sender: FDA-Public Use
  Company Number: US-ABBOTT-10P-163-0690855-00

PATIENT
  Age: 61 None
  Sex: Female
  Weight: 72.64 kg

DRUGS (13)
  1. HUMIRA [Suspect]
     Route: 058
     Dates: start: 200911
  2. HUMIRA [Suspect]
  3. HUMIRA [Suspect]
     Dates: start: 20110119
  4. MIRALAX [Suspect]
     Indication: COLONOSCOPY
     Route: 048
     Dates: start: 20101020, end: 20101020
  5. GAS-X [Concomitant]
     Indication: COLONOSCOPY
     Route: 048
     Dates: start: 20101020, end: 20101020
  6. PREDNISONE [Concomitant]
     Indication: RHEUMATOID ARTHRITIS
  7. PRILOSEC [Concomitant]
     Indication: GASTRIC DISORDER
  8. IBUPROFEN CREAM [Concomitant]
     Indication: PAIN
     Dosage: to knees as needed
     Route: 061
  9. LEVOXYL [Concomitant]
     Indication: THYROIDECTOMY
     Dosage: 12mg daily
  10. BENICAR [Concomitant]
     Indication: HYPERTENSION
  11. VITAMIN D [Concomitant]
     Indication: VITAMIN SUPPLEMENTATION
  12. LORTAB [Concomitant]
     Indication: PAIN
  13. CRESTOR [Concomitant]
     Indication: BLOOD CHOLESTEROL INCREASED
     Dosage: 5mg daily

REACTIONS (10)
  - Polyp [Recovered/Resolved]
  - Dehydration [Recovered/Resolved]
  - Blood pressure decreased [Not Recovered/Not Resolved]
  - Injection site pain [Not Recovered/Not Resolved]
  - Vomiting [Recovered/Resolved]
  - Device malfunction [Recovered/Resolved]
  - Injection site bruising [Not Recovered/Not Resolved]
  - Renal function test abnormal [Recovered/Resolved]
  - Incorrect dose administered [Unknown]
  - Depression [Unknown]
